FAERS Safety Report 20125089 (Version 3)
Quarter: 2022Q1

REPORT INFORMATION
  Report Type: Report from Study
  Country: JP (occurrence: JP)
  Receive Date: 20211129
  Receipt Date: 20220107
  Transmission Date: 20220423
  Serious: Yes (Hospitalization)
  Sender: FDA-Public Use
  Company Number: JP-PFIZER INC-202101656284

PATIENT
  Age: 21 Year
  Sex: Male
  Weight: 58.9 kg

DRUGS (5)
  1. SIROLIMUS [Suspect]
     Active Substance: SIROLIMUS
     Indication: Epilepsy
     Dosage: 4 MG,1 D
     Route: 048
     Dates: start: 20191221, end: 20211110
  2. BELSOMRA [Concomitant]
     Active Substance: SUVOREXANT
     Indication: Insomnia
     Dosage: 20 MG,1 D
     Route: 048
     Dates: start: 20200106
  3. PHENYTOIN [Concomitant]
     Active Substance: PHENYTOIN
     Indication: Epilepsy
     Dosage: 100 MG,12 HR
     Route: 048
     Dates: start: 20130711
  4. VIMPAT [Concomitant]
     Active Substance: LACOSAMIDE
     Indication: Epilepsy
     Dosage: 150 MG,12 HR
     Route: 048
     Dates: start: 20191022
  5. HYDANTOL D [Concomitant]
     Indication: Epilepsy
     Dosage: 25 MG,1 D
     Route: 048
     Dates: start: 20130711

REACTIONS (1)
  - Agitation [Recovering/Resolving]

NARRATIVE: CASE EVENT DATE: 20211109
